FAERS Safety Report 8170492-3 (Version None)
Quarter: 2012Q1

REPORT INFORMATION
  Report Type: 
  Country: None (occurrence: None)
  Receive Date: 20120228
  Receipt Date: 20120216
  Transmission Date: 20120608
  Serious: Yes (Other)
  Sender: FDA-Public Use
  Company Number: IE-AMGEN-IRLSP2012009032

PATIENT
  Age: 54 Year
  Sex: Male
  Weight: 97.4 kg

DRUGS (8)
  1. GLUCOPHAGE [Concomitant]
     Indication: DIABETES MELLITUS
     Dosage: 500 MG, 1 IN 2 D
     Dates: start: 20090510
  2. FOLIC ACID [Concomitant]
     Indication: PROPHYLAXIS
     Dosage: 5 MG, UNK
     Dates: start: 20031001, end: 20050331
  3. ENBREL [Suspect]
     Indication: PSORIATIC ARTHROPATHY
     Dosage: 50 MG, 2X/WEEK
     Route: 058
     Dates: start: 20080605, end: 20100901
  4. NU-SEALS ASPIRIN [Concomitant]
     Indication: PROPHYLAXIS
     Dosage: 75 MG, UNK
  5. LIPITOR [Concomitant]
     Indication: HYPERLIPIDAEMIA
     Dosage: 10 MG, UNK
  6. ENBREL [Suspect]
     Indication: PSORIASIS
     Dosage: 50 MG, 2X/WEEK
     Route: 058
     Dates: start: 20041111, end: 20080331
  7. METHOTREXATE [Concomitant]
     Indication: PSORIASIS
     Dosage: 10 MG, WEEKLY
     Dates: start: 20030612, end: 20050331
  8. CALCIUM CARBONATE [Concomitant]
     Dosage: 2 TABLETS DAILY

REACTIONS (2)
  - METASTATIC NEOPLASM [None]
  - PSORIASIS [None]
